FAERS Safety Report 23013029 (Version 3)
Quarter: 2023Q4

REPORT INFORMATION
  Report Type: Spontaneous
  Country: JP (occurrence: JP)
  Receive Date: 20230930
  Receipt Date: 20231122
  Transmission Date: 20240110
  Serious: Yes (Death, Life-Threatening, Hospitalization, Other)
  Sender: FDA-Public Use
  Company Number: JP-CHUGAI-2023034746AA

PATIENT
  Age: 70 Year
  Sex: Female
  Weight: 49.5 kg

DRUGS (6)
  1. AVASTIN [Suspect]
     Active Substance: BEVACIZUMAB
     Indication: Breast cancer
     Dosage: 591 MILLIGRAM, ONCE/2WEEKS
     Route: 065
     Dates: start: 20230214, end: 20230720
  2. PACLITAXEL [Suspect]
     Active Substance: PACLITAXEL
     Indication: Breast cancer
     Dosage: 94.8 MILLIGRAM, THREE WEEKS ON ONE WEEK OFF
     Route: 065
     Dates: start: 20230214, end: 20231005
  3. CALCIUM CARBONATE\CHOLECALCIFEROL\MAGNESIUM CARBONATE [Concomitant]
     Active Substance: CALCIUM CARBONATE\CHOLECALCIFEROL\MAGNESIUM CARBONATE
     Dosage: UNK
     Dates: start: 20230330, end: 20230924
  4. DENOSUMAB [Concomitant]
     Active Substance: DENOSUMAB
     Dates: start: 20230302, end: 20231005
  5. ESOMEPRAZOLE MAGNESIUM [Concomitant]
     Active Substance: ESOMEPRAZOLE\ESOMEPRAZOLE MAGNESIUM\ESOMEPRAZOLE MAGNESIUM DIHYDRATE
     Dates: start: 20230914, end: 20231016
  6. FUROSEMIDE [Concomitant]
     Active Substance: FUROSEMIDE
     Dates: start: 20230706, end: 20230924

REACTIONS (5)
  - Chylothorax [Fatal]
  - Hypoalbuminaemia [Not Recovered/Not Resolved]
  - Sepsis [Recovering/Resolving]
  - Aspartate aminotransferase increased [Unknown]
  - Alanine aminotransferase increased [Unknown]

NARRATIVE: CASE EVENT DATE: 20231013
